FAERS Safety Report 4506480-5 (Version None)
Quarter: 2004Q4

REPORT INFORMATION
  Report Type: 
  Country: None (occurrence: None)
  Receive Date: 20041122
  Receipt Date: 20041110
  Transmission Date: 20050328
  Serious: Yes (Other)
  Sender: FDA-Public Use
  Company Number: DE-ABBOTT-04P-062-0280178-00

PATIENT
  Sex: Female

DRUGS (1)
  1. ERGENYL CHRONO TABLETS [Suspect]
     Indication: DEPRESSION
     Route: 048

REACTIONS (3)
  - FRACTURE [None]
  - OSTEOPOROSIS [None]
  - VITAMIN D DEFICIENCY [None]
